FAERS Safety Report 4584670-3 (Version None)
Quarter: 2005Q1

REPORT INFORMATION
  Report Type: 
  Country: None (occurrence: None)
  Receive Date: 20050125
  Receipt Date: 20040915
  Transmission Date: 20050727
  Serious: No
  Sender: FDA-Public Use
  Company Number: USA040978375

PATIENT
  Age: 61 Year
  Sex: Female
  Weight: 63 kg

DRUGS (4)
  1. FORTEO [Suspect]
     Indication: FRACTURE
     Dosage: 20 UG/1 DAY
     Dates: start: 20040101
  2. FORTEO [Suspect]
     Indication: PROPHYLAXIS
     Dosage: 20 UG/1 DAY
     Dates: start: 20040101
  3. VIACTIV [Concomitant]
  4. ACTONEL [Concomitant]

REACTIONS (15)
  - BACK PAIN [None]
  - BONE DENSITY DECREASED [None]
  - DYSPEPSIA [None]
  - FEELING ABNORMAL [None]
  - FUNGAL INFECTION [None]
  - GENITAL PRURITUS FEMALE [None]
  - HEADACHE [None]
  - LICHEN SCLEROSUS [None]
  - MUSCLE SPASMS [None]
  - RASH PAPULAR [None]
  - VAGINAL DISCHARGE [None]
  - VAGINAL HAEMORRHAGE [None]
  - VAGINAL INFECTION [None]
  - VAGINAL MUCOSAL BLISTERING [None]
  - VAGINAL SWELLING [None]
